FAERS Safety Report 5589231-5 (Version None)
Quarter: 2008Q1

REPORT INFORMATION
  Report Type: 
  Country: None (occurrence: None)
  Receive Date: 20080114
  Receipt Date: 20080108
  Transmission Date: 20080703
  Serious: Yes (Other)
  Sender: FDA-Public Use
  Company Number: US-BAYER-US-2007-032168

PATIENT
  Age: 33 Year
  Sex: Female
  Weight: 104 kg

DRUGS (2)
  1. MIRENA [Suspect]
     Indication: CONTRACEPTION
     Route: 015
     Dates: start: 20070514, end: 20070614
  2. MULTI-VITAMIN [Concomitant]
     Indication: PREGNANCY
     Route: 048
     Dates: start: 20040101

REACTIONS (6)
  - COMPLICATION OF DEVICE INSERTION [None]
  - DYSPAREUNIA [None]
  - IUD MIGRATION [None]
  - NAUSEA [None]
  - PROCEDURAL PAIN [None]
  - UTERINE SPASM [None]
